FAERS Safety Report 6295409-8 (Version None)
Quarter: 2009Q3

REPORT INFORMATION
  Report Type: 
  Country: None (occurrence: None)
  Receive Date: 20090730
  Receipt Date: 20040428
  Transmission Date: 20100115
  Serious: Yes (Death, Hospitalization, Other)
  Sender: FDA-Public Use
  Company Number: 530#5#2004-00003

PATIENT
  Sex: Male
  Weight: 84 kg

DRUGS (18)
  1. ALPROSTADIL [Suspect]
     Indication: INTERMITTENT CLAUDICATION
     Dosage: (60 ?G 2X/WEEK, 2 TIMES 60 ?G PER WEEK INTRAVENOUS DRIP)
     Route: 041
     Dates: start: 20030910, end: 20031104
  2. PLACEBO (ALTERNATIVE DRUG (DOSE  UNKNOWN), UNKNOWN (BLINDED DRUG)) [Suspect]
     Indication: INTERMITTENT CLAUDICATION
     Dosage: (600 MG BID, 2 X 600 MG PER DAY ORAL)
     Route: 048
     Dates: start: 20030910, end: 20031104
  3. NIFEDIPINE [Concomitant]
  4. ATORVASTATIN [Concomitant]
  5. ASPIRIN [Concomitant]
  6. AMARYL [Concomitant]
  7. CAPTOPRIL [Concomitant]
  8. PROPYCIL [Concomitant]
  9. GLUCOBAY [Concomitant]
  10. PLAVIX [Concomitant]
  11. UNAT /01036501/ [Concomitant]
  12. PANTOPRAZOLE SODIUM [Concomitant]
  13. HEPARIN [Concomitant]
  14. CONCOR /00802602/ [Concomitant]
  15. POTASSIUM CHLORIDE [Concomitant]
  16. UNAT /01036501/ [Concomitant]
  17. SOLUTIONS FOR PARENTERAL NUTRITION [Concomitant]
  18. GENERAL NUTRIENTS [Concomitant]

REACTIONS (31)
  - ACUTE CORONARY SYNDROME [None]
  - AORTIC STENOSIS [None]
  - AORTIC VALVE DISEASE [None]
  - AORTIC VALVE INCOMPETENCE [None]
  - ARTERIOSCLEROSIS [None]
  - ATRIAL FIBRILLATION [None]
  - ATRIOVENTRICULAR BLOCK [None]
  - BACTERIAL INFECTION [None]
  - BUNDLE BRANCH BLOCK RIGHT [None]
  - CANDIDIASIS [None]
  - CARDIAC MURMUR [None]
  - CAROTID ARTERY OCCLUSION [None]
  - DECREASED APPETITE [None]
  - DIARRHOEA [None]
  - ENTEROCOCCAL INFECTION [None]
  - ESCHERICHIA INFECTION [None]
  - GENERAL PHYSICAL HEALTH DETERIORATION [None]
  - HYPOTENSION [None]
  - MYOCARDIAL INFARCTION [None]
  - MYOCARDIAL ISCHAEMIA [None]
  - NORMOCHROMIC NORMOCYTIC ANAEMIA [None]
  - OXYGEN SATURATION DECREASED [None]
  - PERIPHERAL ARTERIAL OCCLUSIVE DISEASE [None]
  - PRODUCTIVE COUGH [None]
  - PSEUDOMEMBRANOUS COLITIS [None]
  - PULMONARY CONGESTION [None]
  - PULMONARY OEDEMA [None]
  - RALES [None]
  - RHONCHI [None]
  - SHOCK [None]
  - SPUTUM CULTURE POSITIVE [None]
